FAERS Safety Report 8574476-2 (Version None)
Quarter: 2012Q3

REPORT INFORMATION
  Report Type: 
  Country: None (occurrence: None)
  Receive Date: 20120806
  Receipt Date: 20120123
  Transmission Date: 20120928
  Serious: No
  Sender: FDA-Public Use
  Company Number: US-ABBOTT-12P-163-0896913-00

PATIENT
  Sex: Male
  Weight: 63.56 kg

DRUGS (2)
  1. ENBREL [Concomitant]
     Indication: ANKYLOSING SPONDYLITIS
  2. DEPAKOTE ER [Suspect]
     Indication: CONVULSION
     Dates: start: 20111123, end: 20120113

REACTIONS (4)
  - PARANOIA [None]
  - PAROSMIA [None]
  - DECREASED APPETITE [None]
  - DELUSION [None]
